FAERS Safety Report 6638129-X (Version None)
Quarter: 2010Q1

REPORT INFORMATION
  Report Type: 
  Country: None (occurrence: None)
  Receive Date: 20100315
  Receipt Date: 20100315
  Transmission Date: 20100710
  Serious: Yes (Hospitalization)
  Sender: FDA-Public Use
  Company Number: None

PATIENT
  Age: 72 Year
  Sex: Female
  Weight: 55.7924 kg

DRUGS (7)
  1. BEVACIZUMAB [Suspect]
     Indication: NON-SMALL CELL LUNG CANCER
     Dosage: 905 MG
     Dates: start: 20100120, end: 20100309
  2. ERLOTINIB [Suspect]
     Indication: NON-SMALL CELL LUNG CANCER
     Dosage: 150 MG
     Dates: start: 20100120, end: 20100309
  3. BENADRYL [Concomitant]
  4. CRESTOR [Concomitant]
  5. JANUMET [Concomitant]
  6. TRUSOPT [Concomitant]
  7. VEXOL [Concomitant]

REACTIONS (1)
  - PNEUMOTHORAX [None]
